FAERS Safety Report 8516593-9 (Version None)
Quarter: 2012Q3

REPORT INFORMATION
  Report Type: 
  Country: None (occurrence: None)
  Receive Date: 20120712
  Receipt Date: 20120712
  Transmission Date: 20120928
  Serious: No
  Sender: FDA-Public Use
  Company Number: None

PATIENT
  Sex: Male
  Weight: 83.9154 kg

DRUGS (1)
  1. ZOLPIDEM [Suspect]
     Indication: SLEEP DISORDER
     Dosage: 1  AS NEEDED
     Dates: start: 20111101, end: 20111110

REACTIONS (2)
  - PRODUCT SUBSTITUTION ISSUE [None]
  - ILL-DEFINED DISORDER [None]
